FAERS Safety Report 5472042-9 (Version None)
Quarter: 2007Q3

REPORT INFORMATION
  Report Type: 
  Country: None (occurrence: None)
  Receive Date: 20070928
  Receipt Date: 20070920
  Transmission Date: 20080115
  Serious: Yes (Hospitalization, Other)
  Sender: FDA-Public Use
  Company Number: US-PFIZER INC-2007079003

PATIENT
  Sex: Male
  Weight: 104.3 kg

DRUGS (5)
  1. LIPITOR [Suspect]
     Indication: BLOOD CHOLESTEROL
  2. SYNTHROID [Concomitant]
  3. LISINOPRIL [Concomitant]
  4. CARVEDILOL [Concomitant]
  5. LASIX [Concomitant]

REACTIONS (3)
  - COUGH [None]
  - HEART VALVE REPLACEMENT [None]
  - VASCULAR GRAFT [None]
